FAERS Safety Report 8028134-3 (Version None)
Quarter: 2012Q1

REPORT INFORMATION
  Report Type: 
  Country: None (occurrence: None)
  Receive Date: 20120104
  Receipt Date: 20111227
  Transmission Date: 20120608
  Serious: Yes (Hospitalization)
  Sender: FDA-Public Use
  Company Number: DKLU1075677

PATIENT
  Age: 18 Month
  Sex: Female

DRUGS (1)
  1. SABRIL [Suspect]
     Indication: INFANTILE SPASMS
     Dosage: 250 MG MILLIGRAM(S) 2 IN 1 D
     Dates: start: 20101221

REACTIONS (1)
  - RESPIRATORY SYNCYTIAL VIRUS INFECTION [None]
